FAERS Safety Report 19625280 (Version 1)
Quarter: 2021Q3

REPORT INFORMATION
  Report Type: Spontaneous
  Country: US (occurrence: US)
  Receive Date: 20210729
  Receipt Date: 20210729
  Transmission Date: 20211014
  Serious: Yes (Hospitalization)
  Sender: FDA-Public Use
  Company Number: US-LUPIN PHARMACEUTICALS INC.-2021-13065

PATIENT
  Age: 85 Year
  Sex: Male

DRUGS (26)
  1. FILGRASTIM [Concomitant]
     Active Substance: FILGRASTIM
     Indication: PANCYTOPENIA
     Dosage: UNK
     Route: 065
  2. ATOVAQUONE. [Concomitant]
     Active Substance: ATOVAQUONE
     Indication: ANTIBIOTIC PROPHYLAXIS
     Dosage: UNK
     Route: 065
  3. VANCOMYCIN [Suspect]
     Active Substance: VANCOMYCIN
     Indication: STREPTOCOCCAL INFECTION
  4. CEFEPIME [Suspect]
     Active Substance: CEFEPIME HYDROCHLORIDE
     Indication: ENTEROCOCCAL INFECTION
  5. DAPTOMYCIN. [Suspect]
     Active Substance: DAPTOMYCIN
     Indication: STREPTOCOCCAL INFECTION
  6. FILGRASTIM [Concomitant]
     Active Substance: FILGRASTIM
     Indication: NEUTROPENIA
  7. PREDNISONE. [Concomitant]
     Active Substance: PREDNISONE
     Dosage: 20 MILLIGRAM, QD
     Route: 048
  8. METRONIDAZOLE. [Suspect]
     Active Substance: METRONIDAZOLE
     Indication: CLOSTRIDIAL INFECTION
  9. VANCOMYCIN [Suspect]
     Active Substance: VANCOMYCIN
     Indication: ALPHA HAEMOLYTIC STREPTOCOCCAL INFECTION
     Dosage: UNK
     Route: 065
  10. DAPTOMYCIN. [Suspect]
     Active Substance: DAPTOMYCIN
     Indication: ENTEROCOCCAL INFECTION
  11. EVEROLIMUS. [Concomitant]
     Active Substance: EVEROLIMUS
     Indication: KAPOSI^S SARCOMA CLASSICAL TYPE
     Dosage: UNK
     Route: 065
  12. PREDNISONE. [Concomitant]
     Active Substance: PREDNISONE
     Indication: LICHENOID KERATOSIS
     Dosage: 1 MILLIGRAM/KILOGRAM
     Route: 048
  13. METRONIDAZOLE. [Suspect]
     Active Substance: METRONIDAZOLE
     Indication: STREPTOCOCCAL INFECTION
  14. CEFEPIME [Suspect]
     Active Substance: CEFEPIME HYDROCHLORIDE
     Indication: ALPHA HAEMOLYTIC STREPTOCOCCAL INFECTION
     Dosage: UNK
     Route: 065
  15. DAPTOMYCIN. [Suspect]
     Active Substance: DAPTOMYCIN
     Indication: CLOSTRIDIAL INFECTION
  16. DOXYCYCLINE. [Concomitant]
     Active Substance: DOXYCYCLINE
     Indication: EVIDENCE BASED TREATMENT
     Dosage: UNK
     Route: 065
  17. METRONIDAZOLE. [Suspect]
     Active Substance: METRONIDAZOLE
     Indication: ALPHA HAEMOLYTIC STREPTOCOCCAL INFECTION
     Dosage: UNK
     Route: 065
  18. DAPTOMYCIN. [Suspect]
     Active Substance: DAPTOMYCIN
     Indication: ALPHA HAEMOLYTIC STREPTOCOCCAL INFECTION
     Dosage: UNK UNK, SINGLE  (ONE DOSE)
     Route: 065
  19. PACLITAXEL. [Concomitant]
     Active Substance: PACLITAXEL
     Indication: KAPOSI^S SARCOMA CLASSICAL TYPE
     Dosage: UNK
     Route: 065
  20. METRONIDAZOLE. [Suspect]
     Active Substance: METRONIDAZOLE
     Indication: ENTEROCOCCAL INFECTION
  21. VANCOMYCIN [Suspect]
     Active Substance: VANCOMYCIN
     Indication: ENTEROCOCCAL INFECTION
  22. CEFEPIME [Suspect]
     Active Substance: CEFEPIME HYDROCHLORIDE
     Indication: CLOSTRIDIAL INFECTION
  23. VANCOMYCIN [Suspect]
     Active Substance: VANCOMYCIN
     Indication: CLOSTRIDIAL INFECTION
  24. CEFEPIME [Suspect]
     Active Substance: CEFEPIME HYDROCHLORIDE
     Indication: STREPTOCOCCAL INFECTION
  25. CASPOFUNGIN [Concomitant]
     Active Substance: CASPOFUNGIN
     Indication: PNEUMONIA FUNGAL
     Dosage: UNK UNK, SINGLE (ONE DOSE)
     Route: 065
  26. CRESEMBA [Concomitant]
     Active Substance: ISAVUCONAZONIUM SULFATE
     Indication: PNEUMONIA FUNGAL
     Dosage: UNK
     Route: 065

REACTIONS (1)
  - Drug ineffective [Unknown]
